FAERS Safety Report 9686374 (Version 1)
Quarter: 2013Q4

REPORT INFORMATION
  Report Type: Spontaneous
  Country: FR (occurrence: FR)
  Receive Date: 20131113
  Receipt Date: 20131113
  Transmission Date: 20140711
  Serious: Yes (Other)
  Sender: FDA-Public Use
  Company Number: FR-TEVA-443059ISR

PATIENT
  Age: 45 Year
  Sex: Female

DRUGS (4)
  1. OXALIPLATINE TEVA 5 MG/ML [Suspect]
     Indication: CHOLANGIOCARCINOMA
     Dosage: 1 UNKNOWN DAILY; EVERY 15 DAYS : 4 CURES
     Route: 041
     Dates: start: 201301, end: 201302
  2. OXALIPLATINE TEVA 5 MG/ML [Suspect]
     Dosage: 1 UNKNOWN DAILY;
     Route: 025
     Dates: start: 201303, end: 20130904
  3. GEMCITABINE [Concomitant]
     Indication: CHOLANGIOCARCINOMA
     Dosage: EVERY 15 DAYS : 4 CURES
     Route: 041
     Dates: start: 201301, end: 201302
  4. GEMCITABINE [Concomitant]
     Dosage: 1 UNKNOWN DAILY;
     Route: 025
     Dates: start: 201303

REACTIONS (3)
  - Hypotension [Recovered/Resolved]
  - Oxygen saturation decreased [Recovered/Resolved]
  - Tachycardia [Recovered/Resolved]
